FAERS Safety Report 14300221 (Version 1)
Quarter: 2017Q4

REPORT INFORMATION
  Report Type: Spontaneous
  Country: US (occurrence: US)
  Receive Date: 20171219
  Receipt Date: 20171219
  Transmission Date: 20180321
  Serious: No
  Sender: FDA-Public Use
  Company Number: US-TEVA-816051ACC

PATIENT
  Age: 85 Year
  Sex: Female

DRUGS (3)
  1. AZITHROMYCIN ANHYDROUS. [Suspect]
     Active Substance: AZITHROMYCIN ANHYDROUS
     Indication: TOOTH EXTRACTION
     Route: 048
     Dates: start: 20171006, end: 20171007
  2. ACEFEX [Concomitant]
  3. VALSARTAN. [Concomitant]
     Active Substance: VALSARTAN

REACTIONS (6)
  - Dizziness [Unknown]
  - Fatigue [Unknown]
  - Constipation [Unknown]
  - Dysphonia [Unknown]
  - Feeling abnormal [Unknown]
  - Laryngitis [Unknown]
